FAERS Safety Report 6103011-3 (Version None)
Quarter: 2009Q1

REPORT INFORMATION
  Report Type: 
  Country: None (occurrence: None)
  Receive Date: 20090305
  Receipt Date: 20090224
  Transmission Date: 20090719
  Serious: Yes (Hospitalization)
  Sender: FDA-Public Use
  Company Number: CA-JNJFOC-20081201864

PATIENT
  Age: 62 Year
  Sex: Male
  Weight: 93.8 kg

DRUGS (2)
  1. REMICADE [Suspect]
     Dosage: 34TH INFUSION
     Route: 042
  2. REMICADE [Suspect]
     Indication: RHEUMATOID ARTHRITIS
     Route: 042

REACTIONS (1)
  - LUNG NEOPLASM [None]
